FAERS Safety Report 8390713-1 (Version None)
Quarter: 2012Q2

REPORT INFORMATION
  Report Type: 
  Country: None (occurrence: None)
  Receive Date: 20120529
  Receipt Date: 20120516
  Transmission Date: 20120825
  Serious: Yes (Other)
  Sender: FDA-Public Use
  Company Number: DK-JNJFOC-20120503529

PATIENT
  Age: 26 Year
  Sex: Male

DRUGS (39)
  1. RITUXIMAB [Suspect]
     Route: 065
     Dates: start: 20080101
  2. ETOPOSIDE [Suspect]
     Route: 065
  3. CYCLOPHOSPHAMIDE [Suspect]
     Route: 065
     Dates: end: 20080501
  4. CYCLOPHOSPHAMIDE [Suspect]
     Route: 065
  5. PREDNISONE [Suspect]
     Route: 065
     Dates: start: 20080101
  6. DOXORUBICIN HYDROCHLORIDE [Suspect]
     Route: 042
  7. DOXORUBICIN HYDROCHLORIDE [Suspect]
     Route: 042
  8. VINCRISTINE [Suspect]
     Route: 065
  9. VINCRISTINE [Suspect]
     Route: 065
     Dates: start: 20080101
  10. RITUXIMAB [Suspect]
     Indication: DIFFUSE LARGE B-CELL LYMPHOMA STAGE IV
     Route: 065
  11. ETOPOSIDE [Suspect]
     Route: 065
  12. ETOPOSIDE [Suspect]
     Route: 065
     Dates: end: 20080501
  13. ETOPOSIDE [Suspect]
     Route: 065
     Dates: start: 20080101
  14. DOXORUBICIN HYDROCHLORIDE [Suspect]
     Route: 042
  15. VINCRISTINE [Suspect]
     Route: 065
  16. ETOPOSIDE [Suspect]
     Indication: DIFFUSE LARGE B-CELL LYMPHOMA STAGE IV
     Route: 065
  17. CYCLOPHOSPHAMIDE [Suspect]
     Route: 065
  18. CYCLOPHOSPHAMIDE [Suspect]
     Route: 065
  19. EMTRICITABINE/TENOFOVIR DISOPROXIL FUMARATE [Concomitant]
     Indication: PRODUCT USED FOR UNKNOWN INDICATION
     Route: 065
  20. DOXORUBICIN HYDROCHLORIDE [Suspect]
     Indication: DIFFUSE LARGE B-CELL LYMPHOMA STAGE IV
     Route: 042
     Dates: end: 20080501
  21. RITUXIMAB [Suspect]
     Route: 065
  22. ETOPOSIDE [Suspect]
     Route: 065
  23. PREDNISONE [Suspect]
     Indication: DIFFUSE LARGE B-CELL LYMPHOMA STAGE IV
     Route: 065
  24. PREDNISONE [Suspect]
     Route: 065
  25. LAMIVUDINE [Concomitant]
     Indication: PROPHYLAXIS
     Route: 065
  26. DOXORUBICIN HYDROCHLORIDE [Suspect]
     Route: 042
  27. VINCRISTINE [Suspect]
     Route: 065
  28. RITUXIMAB [Suspect]
     Route: 065
     Dates: end: 20080501
  29. PREDNISONE [Suspect]
     Route: 065
  30. VINCRISTINE [Suspect]
     Route: 065
  31. PREDNISONE [Suspect]
     Route: 065
  32. DOXORUBICIN HYDROCHLORIDE [Suspect]
     Route: 042
     Dates: start: 20080101
  33. RITUXIMAB [Suspect]
     Route: 065
  34. RITUXIMAB [Suspect]
     Route: 065
  35. CYCLOPHOSPHAMIDE [Suspect]
     Indication: DIFFUSE LARGE B-CELL LYMPHOMA STAGE IV
     Route: 065
     Dates: start: 20080101
  36. CYCLOPHOSPHAMIDE [Suspect]
     Route: 065
  37. PREDNISONE [Suspect]
     Route: 065
     Dates: end: 20080501
  38. NUCLEOSIDE REVERSE TRANSCRIPTASE INHIBITORS [Concomitant]
     Indication: PRODUCT USED FOR UNKNOWN INDICATION
     Route: 065
  39. VINCRISTINE [Suspect]
     Indication: DIFFUSE LARGE B-CELL LYMPHOMA STAGE IV
     Route: 065
     Dates: end: 20080501

REACTIONS (1)
  - HEPATITIS D [None]
